FAERS Safety Report 22623354 (Version 2)
Quarter: 2023Q2

REPORT INFORMATION
  Report Type: Spontaneous
  Country: US (occurrence: US)
  Receive Date: 20230621
  Receipt Date: 20230630
  Transmission Date: 20230721
  Serious: No
  Sender: FDA-Public Use
  Company Number: US-AIMMUNE THERAPEUTICS, INC.-2023AIMT00578

PATIENT

DRUGS (5)
  1. PALFORZIA [Suspect]
     Active Substance: PEANUT
     Indication: Food allergy
     Dosage: IDE (0.5MG-6MG), ONCE
     Route: 048
     Dates: start: 20220419, end: 20220419
  2. PALFORZIA [Suspect]
     Active Substance: PEANUT
     Dosage: UNK MG, 1X/DAY
     Route: 048
     Dates: start: 2023, end: 20230104
  3. PALFORZIA [Suspect]
     Active Substance: PEANUT
     Dosage: UNK MG, 1X/DAY
     Route: 048
     Dates: start: 20230106
  4. PALFORZIA [Suspect]
     Active Substance: PEANUT
     Dosage: 300 MG, 1X/DAY
     Route: 048
     Dates: start: 20230414
  5. PALFORZIA [Suspect]
     Active Substance: PEANUT
     Dosage: 300 MG, ONCE, LAST DOSE PRIOR EVENT
     Route: 048

REACTIONS (2)
  - Malaise [Unknown]
  - Product dose omission issue [Recovered/Resolved]

NARRATIVE: CASE EVENT DATE: 20230105
